FAERS Safety Report 20387584 (Version 1)
Quarter: 2022Q1

REPORT INFORMATION
  Report Type: Spontaneous
  Country: None (occurrence: US)
  Receive Date: 20220127
  Receipt Date: 20220127
  Transmission Date: 20220423
  Serious: Yes (Death, Hospitalization, Other)
  Sender: FDA-Public Use
  Company Number: US-Hisun Pharmaceuticals-2124375

PATIENT
  Age: 22 Year
  Sex: Male

DRUGS (5)
  1. DAUNORUBICIN HYDROCHLORIDE [Suspect]
     Active Substance: DAUNORUBICIN HYDROCHLORIDE
     Indication: Acute monocytic leukaemia
  2. CYTARABINE [Suspect]
     Active Substance: CYTARABINE
  3. VANCOMYCIN [Concomitant]
     Active Substance: VANCOMYCIN
  4. CEFEPIME [Concomitant]
     Active Substance: CEFEPIME HYDROCHLORIDE
  5. VORICONAZOLE [Concomitant]
     Active Substance: VORICONAZOLE

REACTIONS (3)
  - Hyperammonaemia [Fatal]
  - Brain herniation [Fatal]
  - Brain death [Fatal]
